FAERS Safety Report 6314741-2 (Version None)
Quarter: 2009Q3

REPORT INFORMATION
  Report Type: 
  Country: None (occurrence: None)
  Receive Date: 20090817
  Receipt Date: 20090808
  Transmission Date: 20100115
  Serious: Yes (Life-Threatening)
  Sender: FDA-Public Use
  Company Number: ENT 2009-0133

PATIENT
  Sex: Female

DRUGS (7)
  1. COMTAN [Suspect]
     Indication: PARKINSON'S DISEASE
     Dosage: 800 MG (200 MG, 4 IN 1 D) ORAL
     Route: 048
  2. AMANTADINE HCL [Concomitant]
  3. CARBIDOPA AND LEVODOPA [Concomitant]
  4. PANTOPRAZOLE SODIUM [Concomitant]
  5. QUETIAPINE [Concomitant]
  6. METOPROLOL [Concomitant]
  7. COUMADIN [Concomitant]

REACTIONS (1)
  - CHOKING [None]
